FAERS Safety Report 22652565 (Version 1)
Quarter: 2023Q2

REPORT INFORMATION
  Report Type: Report from Study
  Country: SE (occurrence: SE)
  Receive Date: 20230629
  Receipt Date: 20230629
  Transmission Date: 20230721
  Serious: Yes (Hospitalization)
  Sender: FDA-Public Use
  Company Number: SE-TAKEDA-2023TUS034383

PATIENT
  Sex: Male

DRUGS (22)
  1. IDURSULFASE [Suspect]
     Active Substance: IDURSULFASE
     Indication: Mucopolysaccharidosis II
     Dosage: 0.5 MILLIGRAM/KILOGRAM, 1/WEEK
     Route: 042
     Dates: start: 20050215
  2. IDURSULFASE [Suspect]
     Active Substance: IDURSULFASE
     Dosage: 0.49 MILLIGRAM/KILOGRAM, 1/WEEK
     Route: 042
     Dates: start: 20130417
  3. BUDESONIDE [Concomitant]
     Active Substance: BUDESONIDE
     Indication: Asthma
     Route: 065
  4. LORATADINE [Concomitant]
     Active Substance: LORATADINE
     Indication: Hypersensitivity
     Route: 065
  5. PULMICORT TURBUHALER [Concomitant]
     Active Substance: BUDESONIDE
     Indication: Hypersensitivity
     Route: 055
  6. LOMUDAL [Concomitant]
     Indication: Hypersensitivity
     Dosage: UNK
     Route: 031
  7. ESCITALOPRAM [Concomitant]
     Active Substance: ESCITALOPRAM OXALATE
     Indication: Depression
     Dosage: UNK
     Route: 048
  8. GENOTROPIN [Concomitant]
     Active Substance: SOMATROPIN
     Indication: Growth retardation
     Dosage: UNK
     Route: 030
     Dates: start: 20000628, end: 2005
  9. NAPROXEN [Concomitant]
     Active Substance: NAPROXEN
     Indication: Pain
     Dosage: UNK
     Route: 048
     Dates: start: 20131011
  10. ACETAMINOPHEN\CODEINE PHOSPHATE [Concomitant]
     Active Substance: ACETAMINOPHEN\CODEINE PHOSPHATE
     Indication: Back pain
     Dosage: UNK
     Route: 048
     Dates: start: 20150122
  11. AMITRIPTYLINE [Concomitant]
     Active Substance: AMITRIPTYLINE
     Indication: Antidepressant therapy
     Dosage: UNK
     Route: 048
     Dates: start: 20150122, end: 20171023
  12. OXYCONTIN [Concomitant]
     Active Substance: OXYCODONE HYDROCHLORIDE
     Indication: Pain
     Dosage: UNK
     Route: 048
     Dates: start: 2017, end: 202111
  13. METOPROLOL [Concomitant]
     Active Substance: METOPROLOL
     Indication: Hypertension
     Dosage: UNK
     Route: 048
     Dates: start: 20181024, end: 20181114
  14. DIAZEPAM [Concomitant]
     Active Substance: DIAZEPAM
     Indication: Pain
     Dosage: UNK
     Route: 048
     Dates: start: 20190201
  15. CHLORZOXAZONE [Concomitant]
     Active Substance: CHLORZOXAZONE
     Indication: Pain
     Dosage: UNK
     Route: 048
     Dates: start: 20190201
  16. BRINTELLIX [Concomitant]
     Active Substance: VORTIOXETINE HYDROBROMIDE
     Indication: Depression
     Dosage: UNK
     Route: 048
     Dates: start: 2021, end: 202203
  17. MELATONIN [Concomitant]
     Active Substance: MELATONIN
     Indication: Insomnia
     Dosage: UNK
     Route: 042
     Dates: start: 20210113
  18. CELECOXIB [Concomitant]
     Active Substance: CELECOXIB
     Indication: Pain
     Dosage: UNK
     Route: 048
     Dates: start: 20210113
  19. NORSPAN [Concomitant]
     Active Substance: BUPRENORPHINE
     Indication: Back pain
     Dosage: UNK
     Route: 062
     Dates: start: 202111
  20. BISOPROLOL [Concomitant]
     Active Substance: BISOPROLOL
     Indication: Prophylaxis
     Dosage: UNK
     Route: 048
     Dates: start: 20220713
  21. WARFARIN [Concomitant]
     Active Substance: WARFARIN
     Indication: Prophylaxis
     Dosage: UNK
     Route: 048
     Dates: start: 20221118
  22. CLONIDINE [Concomitant]
     Active Substance: CLONIDINE
     Indication: Hypertension
     Dosage: UNK
     Route: 048
     Dates: start: 20221119

REACTIONS (1)
  - Atrial tachycardia [Recovered/Resolved]

NARRATIVE: CASE EVENT DATE: 20230112
